FAERS Safety Report 9439069 (Version 3)
Quarter: 2014Q2

REPORT INFORMATION
  Report Type: Report from Study
  Country: US (occurrence: US)
  Receive Date: 20130802
  Receipt Date: 20140403
  Transmission Date: 20141212
  Serious: Yes (Hospitalization, Other)
  Sender: FDA-Public Use
  Company Number: US-US-EMD SERONO, INC.-7227085

PATIENT
  Sex: Female

DRUGS (1)
  1. REBIF [Suspect]
     Indication: MULTIPLE SCLEROSIS
     Route: 058
     Dates: start: 20030204

REACTIONS (6)
  - Osteonecrosis [Recovered/Resolved]
  - Chronic myeloid leukaemia [Recovering/Resolving]
  - Aortic aneurysm [Not Recovered/Not Resolved]
  - Hip fracture [Recovering/Resolving]
  - Fall [Unknown]
  - Hypotension [Unknown]
